FAERS Safety Report 19570343 (Version 1)
Quarter: 2021Q3

REPORT INFORMATION
  Report Type: Report from Study
  Country: CO (occurrence: CO)
  Receive Date: 20210715
  Receipt Date: 20210715
  Transmission Date: 20211014
  Serious: Yes (Death, Hospitalization, Other)
  Sender: FDA-Public Use
  Company Number: CO-TAKEDA-2021TUS041877

PATIENT
  Age: 16 Year
  Sex: Male
  Weight: 33 kg

DRUGS (2)
  1. IDURSULFASE [Suspect]
     Active Substance: IDURSULFASE
     Dosage: UNK, 2/WEEK
     Route: 065
  2. IDURSULFASE [Suspect]
     Active Substance: IDURSULFASE
     Indication: MUCOPOLYSACCHARIDOSIS II
     Dosage: 18 MILLIGRAM, 1/WEEK
     Route: 042
     Dates: start: 20181108

REACTIONS (8)
  - Asthenia [Fatal]
  - General physical health deterioration [Fatal]
  - Illness [Unknown]
  - Feeding disorder [Unknown]
  - Inappropriate schedule of product administration [Unknown]
  - Decreased appetite [Fatal]
  - Mobility decreased [Fatal]
  - Dyspnoea [Fatal]

NARRATIVE: CASE EVENT DATE: 20210604
